FAERS Safety Report 8399944-8 (Version None)
Quarter: 2012Q2

REPORT INFORMATION
  Report Type: 
  Country: None (occurrence: None)
  Receive Date: 20120531
  Receipt Date: 20120522
  Transmission Date: 20120825
  Serious: Yes (Death, Other)
  Sender: FDA-Public Use
  Company Number: GR-BAXTER-2012BAX004126

PATIENT
  Age: 55 Year
  Sex: Male
  Weight: 85 kg

DRUGS (7)
  1. HUMAN ALBUMIN/BAXTER 200G/L SOLUTION FOR INFUSION [Suspect]
     Dosage: 100 ML X 2
     Route: 042
     Dates: start: 20120325, end: 20120329
  2. DAPTOMYCIN [Concomitant]
     Route: 042
     Dates: start: 20120301, end: 20120310
  3. HUMAN ALBUMIN/BAXTER 200G/L SOLUTION FOR INFUSION [Suspect]
     Indication: NEPHROTIC SYNDROME
     Dosage: 100 ML X 1
     Route: 042
     Dates: start: 20120302, end: 20120306
  4. CEFTAZIDIME [Concomitant]
     Dosage: 2 GR X 3
     Route: 042
     Dates: start: 20120225, end: 20120307
  5. HUMAN ALBUMIN/BAXTER 200G/L SOLUTION FOR INFUSION [Suspect]
     Dosage: 100 ML X 2
     Route: 042
     Dates: start: 20120125, end: 20120127
  6. COLISTIMETHATE SODIUM [Concomitant]
     Dosage: 2.10^6 X 3
     Route: 042
     Dates: start: 20120120, end: 20120204
  7. OMEPRAZOLE [Concomitant]
     Route: 042
     Dates: start: 20120120, end: 20120202

REACTIONS (2)
  - HYPERSENSITIVITY [None]
  - MULTI-ORGAN FAILURE [None]
